FAERS Safety Report 8141641-8 (Version None)
Quarter: 2012Q1

REPORT INFORMATION
  Report Type: 
  Country: None (occurrence: None)
  Receive Date: 20120216
  Receipt Date: 20120202
  Transmission Date: 20120608
  Serious: Yes (Hospitalization)
  Sender: FDA-Public Use
  Company Number: US-UCBSA-051106

PATIENT
  Age: 7 Year
  Sex: Male
  Weight: 20.2 kg

DRUGS (4)
  1. INTUNIV [Concomitant]
     Indication: IMPULSIVE BEHAVIOUR
     Route: 048
     Dates: start: 20111212
  2. LACOSAMIDE [Suspect]
     Indication: CONVULSION
     Route: 048
     Dates: start: 20110322
  3. TRILEPTAL [Concomitant]
     Indication: CONVULSION
     Route: 048
     Dates: start: 20060120
  4. KEPPRA [Concomitant]
     Indication: CONVULSION
     Route: 048
     Dates: start: 20080506

REACTIONS (1)
  - UNRESPONSIVE TO STIMULI [None]
